FAERS Safety Report 5576182-5 (Version None)
Quarter: 2007Q4

REPORT INFORMATION
  Report Type: 
  Country: None (occurrence: None)
  Receive Date: 20071228
  Receipt Date: 20071219
  Transmission Date: 20080405
  Serious: Yes (Other)
  Sender: FDA-Public Use
  Company Number: US-ROCHE-537888

PATIENT
  Age: 63 Year
  Sex: Female

DRUGS (1)
  1. BONIVA [Suspect]
     Indication: OSTEOPOROSIS
     Route: 042
     Dates: start: 20071210

REACTIONS (5)
  - CELLULITIS [None]
  - INJECTION SITE EXTRAVASATION [None]
  - INSOMNIA [None]
  - MEDICATION ERROR [None]
  - THROMBOSIS [None]
